FAERS Safety Report 8578128-4 (Version None)
Quarter: 2012Q3

REPORT INFORMATION
  Report Type: 
  Country: None (occurrence: None)
  Receive Date: 20120808
  Receipt Date: 20120730
  Transmission Date: 20120928
  Serious: Yes (Other)
  Sender: FDA-Public Use
  Company Number: GB-ACCORD-014299

PATIENT
  Age: 69 Year
  Sex: Male
  Weight: 85 kg

DRUGS (11)
  1. LANSOPRAZOLE [Concomitant]
     Dates: start: 20120510
  2. CALCIUM CARBONATE [Concomitant]
     Dates: start: 20120312, end: 20120511
  3. TERAZOSIN HYDROCHLORIDE [Concomitant]
     Dates: start: 20120607, end: 20120705
  4. SIMVASTATIN [Suspect]
     Dates: start: 20120622
  5. FLUTICASONE PROPIONATE [Concomitant]
     Dates: start: 20120711, end: 20120712
  6. FINASTERIDE [Concomitant]
     Dates: start: 20120511, end: 20120608
  7. VENTOLIN [Concomitant]
     Dates: start: 20120511
  8. VISCOTEARS [Concomitant]
     Dates: start: 20120709, end: 20120716
  9. DEXAMETHASONE [Concomitant]
     Dates: start: 20120622, end: 20120623
  10. AMOXICILLIN [Concomitant]
     Dates: start: 20120622, end: 20120629
  11. BUDESONIDE [Concomitant]
     Dates: start: 20120711, end: 20120712

REACTIONS (2)
  - DYSPNOEA [None]
  - CHEST DISCOMFORT [None]
